FAERS Safety Report 8381168-1 (Version None)
Quarter: 2012Q2

REPORT INFORMATION
  Report Type: 
  Country: None (occurrence: None)
  Receive Date: 20120523
  Receipt Date: 20120514
  Transmission Date: 20120825
  Serious: Yes (Hospitalization)
  Sender: FDA-Public Use
  Company Number: NL-ABBOTT-12P-114-0935660-00

PATIENT
  Sex: Male
  Weight: 79 kg

DRUGS (7)
  1. BISOPROLOL FUMARATE AND HYDROCHLOROTHIAZIDE [Concomitant]
     Indication: HYPERTENSION
     Dosage: 5/12.5MG, ONCE DAILY
     Route: 048
     Dates: start: 20040101
  2. OMEPRAZOLE [Concomitant]
     Indication: PROPHYLAXIS
  3. LEUPROLIDE ACETATE [Suspect]
     Indication: PROSTATE CANCER
     Route: 058
     Dates: start: 20090101
  4. OMEPRAZOLE [Concomitant]
     Indication: GASTRIC DISORDER
     Route: 048
  5. ATORVASTATIN CALCIUM [Concomitant]
     Indication: HYPERCHOLESTEROLAEMIA
     Route: 048
     Dates: start: 20040101
  6. ASPIRIN [Concomitant]
     Indication: ANTICOAGULANT THERAPY
     Dosage: DISPERSABLE TABLET, ONCE DAILY
     Route: 048
     Dates: start: 20040101
  7. LOSARTAN POTASSIUM [Concomitant]
     Indication: HYPERTENSION
     Route: 048
     Dates: start: 20040101

REACTIONS (4)
  - DRUG INEFFECTIVE [None]
  - DEPRESSION [None]
  - POST PROCEDURAL INFECTION [None]
  - PAIN [None]
